FAERS Safety Report 26001596 (Version 1)
Quarter: 2025Q4

REPORT INFORMATION
  Report Type: Spontaneous
  Country: US (occurrence: US)
  Receive Date: 20251105
  Receipt Date: 20251105
  Transmission Date: 20260118
  Serious: No
  Sender: BRISTOL-MYERS SQUIBB COMPANY
  Company Number: US-BRISTOL-MYERS SQUIBB COMPANY-2025-150281

PATIENT
  Age: 4 Year
  Sex: Female

DRUGS (1)
  1. ORENCIA [Suspect]
     Active Substance: ABATACEPT
     Indication: Juvenile idiopathic arthritis
     Dosage: STRENGTH: 50MG/0.4ML, FREQUENCY: EVERY 7 DAYS
     Route: 058
     Dates: start: 202509

REACTIONS (1)
  - Illness [Unknown]
